FAERS Safety Report 9089589 (Version 1)
Quarter: 2013Q1

REPORT INFORMATION
  Report Type: Spontaneous
  Country: US (occurrence: US)
  Receive Date: 20130201
  Receipt Date: 20130201
  Transmission Date: 20140127
  Serious: No
  Sender: FDA-Public Use
  Company Number: US-B.I. PHARMACEUTICALS,INC./RIDGEFIELD-2013-BI-02799BP

PATIENT
  Sex: Female

DRUGS (4)
  1. MICARDIS [Suspect]
     Indication: HYPERTENSION
     Dosage: 40 MG
     Route: 048
     Dates: start: 2010
  2. HYDROCODONE [Concomitant]
     Indication: MIGRAINE
     Route: 048
  3. ATIVAN [Concomitant]
     Indication: SLEEP DISORDER
     Route: 048
  4. SYNTHROID [Concomitant]
     Route: 048

REACTIONS (4)
  - Dizziness [Recovered/Resolved]
  - Herpes virus infection [Not Recovered/Not Resolved]
  - Headache [Recovered/Resolved]
  - Blood pressure increased [Not Recovered/Not Resolved]
